FAERS Safety Report 17989133 (Version 2)
Quarter: 2020Q3

REPORT INFORMATION
  Report Type: Spontaneous
  Country: NL (occurrence: NL)
  Receive Date: 20200707
  Receipt Date: 20200714
  Transmission Date: 20201103
  Serious: Yes (Life-Threatening, Other)
  Sender: FDA-Public Use
  Company Number: NL-PFIZER INC-2020257368

PATIENT
  Sex: Female
  Weight: 60 kg

DRUGS (2)
  1. SUFENTANIL CITRATE. [Interacting]
     Active Substance: SUFENTANIL CITRATE
     Indication: ANALGESIC THERAPY
     Dosage: 2.5 MCG/HOUR
     Dates: start: 2020
  2. LINEZOLID. [Suspect]
     Active Substance: LINEZOLID
     Indication: INFECTION
     Dosage: 600 MG, 2X/DAY
     Dates: start: 2020

REACTIONS (4)
  - Haemodynamic instability [Recovered/Resolved]
  - Serotonin syndrome [Unknown]
  - Drug interaction [Unknown]
  - Hyperthermia [Recovered/Resolved]

NARRATIVE: CASE EVENT DATE: 2020
